FAERS Safety Report 15330282 (Version 1)
Quarter: 2018Q3

REPORT INFORMATION
  Report Type: Spontaneous
  Country: US (occurrence: US)
  Receive Date: 20180824
  Receipt Date: 20180824
  Transmission Date: 20181010
  Serious: Yes (Hospitalization)
  Sender: FDA-Public Use
  Company Number: None

PATIENT
  Age: 30 Year
  Sex: Female

DRUGS (2)
  1. GAMUNEX?C [Suspect]
     Active Substance: HUMAN IMMUNOGLOBULIN G
     Indication: IMMUNODEFICIENCY
     Route: 042
  2. ARMOUR THYROID [Concomitant]
     Active Substance: THYROID, PORCINE

REACTIONS (4)
  - Drug dose omission [None]
  - Meningitis aseptic [None]
  - Memory impairment [None]
  - Product substitution issue [None]

NARRATIVE: CASE EVENT DATE: 20180823
